FAERS Safety Report 21362808 (Version 2)
Quarter: 2022Q3

REPORT INFORMATION
  Report Type: Report from Study
  Country: US (occurrence: US)
  Receive Date: 20220922
  Receipt Date: 20220930
  Transmission Date: 20221027
  Serious: Yes (Other)
  Sender: FDA-Public Use
  Company Number: US-ABBVIE-4128596

PATIENT
  Sex: Male

DRUGS (6)
  1. DUOPA [Suspect]
     Active Substance: CARBIDOPA\LEVODOPA
     Indication: Product used for unknown indication
     Route: 050
     Dates: start: 20160928
  2. DUOPA [Suspect]
     Active Substance: CARBIDOPA\LEVODOPA
  3. APOKYN 10MG/ML [Concomitant]
     Indication: Product used for unknown indication
     Dosage: DOSAGE: 10 MG/ML
  4. DULOXETINE [Concomitant]
     Active Substance: DULOXETINE
     Indication: Product used for unknown indication
  5. SINEMET 25-100MG [Concomitant]
     Indication: Product used for unknown indication
     Dosage: 25-100 MG
  6. AMANTADINE [Concomitant]
     Active Substance: AMANTADINE
     Indication: Product used for unknown indication

REACTIONS (2)
  - Implantable cardiac monitor insertion [Unknown]
  - Excessive granulation tissue [Unknown]
